FAERS Safety Report 10332137 (Version 2)
Quarter: 2014Q3

REPORT INFORMATION
  Report Type: Report from Study
  Country: FR (occurrence: FR)
  Receive Date: 20140722
  Receipt Date: 20140722
  Transmission Date: 20150326
  Serious: Yes (Hospitalization, Other)
  Sender: FDA-Public Use
  Company Number: FR-BRISTOL-MYERS SQUIBB COMPANY-19126903

PATIENT
  Age: 65 Year
  Sex: Male

DRUGS (3)
  1. DEPAKINE [Concomitant]
     Active Substance: VALPROATE SODIUM
     Route: 048
     Dates: start: 20130424
  2. IPILIMUMAB [Suspect]
     Active Substance: IPILIMUMAB
     Indication: METASTATIC MALIGNANT MELANOMA
     Dosage: IPILIMUMAB IV 10 MG/KG
     Route: 042
     Dates: start: 20130626
  3. URBANYL [Concomitant]
     Active Substance: CLOBAZAM
     Route: 048
     Dates: start: 20130424

REACTIONS (2)
  - Aphasia [Recovered/Resolved]
  - Epilepsy [Unknown]

NARRATIVE: CASE EVENT DATE: 20130712
